FAERS Safety Report 5057617-3 (Version None)
Quarter: 2006Q3

REPORT INFORMATION
  Report Type: 
  Country: None (occurrence: None)
  Receive Date: 20060721
  Receipt Date: 20051221
  Transmission Date: 20061208
  Serious: No
  Sender: FDA-Public Use
  Company Number: US-GLAXOSMITHKLINE-A0586885A

PATIENT
  Age: 78 Year
  Sex: Female

DRUGS (8)
  1. AVANDIA [Suspect]
     Dosage: 4MG PER DAY
     Route: 048
  2. GLUCOPHAGE [Concomitant]
  3. UNSPECIFIED MEDICATION [Concomitant]
  4. ASPIRIN [Concomitant]
  5. DIABETA [Concomitant]
  6. LOPRESSOR [Concomitant]
  7. CATAPRES [Concomitant]
  8. POTASSIUM [Concomitant]

REACTIONS (2)
  - DRY MOUTH [None]
  - ORAL DISCOMFORT [None]
